FAERS Safety Report 5755927-5 (Version None)
Quarter: 2008Q2

REPORT INFORMATION
  Report Type: 
  Country: None (occurrence: None)
  Receive Date: 20080528
  Receipt Date: 20080513
  Transmission Date: 20081010
  Serious: Yes (Hospitalization)
  Sender: FDA-Public Use
  Company Number: 2008S1008116

PATIENT
  Age: 63 Year
  Sex: Female

DRUGS (3)
  1. METOPROLOL TARTRATE [Suspect]
     Indication: HYPERTENSION
     Dosage: 50 MG; DAILY
     Dates: end: 20040412
  2. PAROXETINE HCL [Suspect]
     Indication: DEPRESSION
     Dosage: 20 MG; DAILY
     Dates: end: 20040415
  3. ALPRAZOLAM [Concomitant]

REACTIONS (2)
  - ATRIOVENTRICULAR BLOCK COMPLETE [None]
  - PRESYNCOPE [None]
